FAERS Safety Report 24422308 (Version 1)
Quarter: 2024Q4

REPORT INFORMATION
  Report Type: Spontaneous
  Country: GB (occurrence: GB)
  Receive Date: 20241010
  Receipt Date: 20241010
  Transmission Date: 20250115
  Serious: Yes (Disabling)
  Sender: TEVA
  Company Number: GB-MHRA-TPP14336665C10522108YC1727443229155

PATIENT
  Age: 79 Year
  Sex: Female
  Weight: 60 kg

DRUGS (10)
  1. AMLODIPINE [Suspect]
     Active Substance: AMLODIPINE BESYLATE
     Route: 048
     Dates: start: 20240820, end: 20240917
  2. FELODIPINE [Concomitant]
     Active Substance: FELODIPINE
     Dosage: DOSE MAY NEED TO INCREASE BASED
     Route: 065
     Dates: start: 20240920
  3. MOMETASONE [Concomitant]
     Active Substance: MOMETASONE
     Route: 065
     Dates: start: 20191230
  4. PEPPERMINT OIL [Concomitant]
     Active Substance: PEPPERMINT OIL
     Route: 065
     Dates: start: 20191230
  5. AMITRIPTYLINE HYDROCHLORIDE [Concomitant]
     Active Substance: AMITRIPTYLINE HYDROCHLORIDE
     Dosage: AT NIGHT
     Route: 065
     Dates: start: 20191230
  6. TRAMADOL [Concomitant]
     Active Substance: TRAMADOL
     Dosage: TAKE 1 OR 2 EVERY 4-6 HRS
     Route: 065
     Dates: start: 20240629, end: 20240727
  7. FYBOGEL [Concomitant]
     Active Substance: HERBALS\PLANTAGO OVATA SEED
     Dosage: SACHET
     Route: 065
     Dates: start: 20220526
  8. ACETAMINOPHEN\CODEINE PHOSPHATE [Concomitant]
     Active Substance: ACETAMINOPHEN\CODEINE PHOSPHATE
     Dosage: TAKE 1 OR 2 4 TIMES/DAY WHEN REQUIRED
     Route: 065
     Dates: start: 20191230
  9. IBUPROFEN [Concomitant]
     Active Substance: IBUPROFEN
     Dosage: TIME INTERVAL: 0.33333333 DAYS: APPLY 3 TIMES/DAY
     Route: 065
     Dates: start: 20221221
  10. CARBOMER [Concomitant]
     Active Substance: CARBOMER
     Dosage: ONE DROP 3-4 TIMES/DAY, CARBOMER 980
     Route: 065
     Dates: start: 20191230

REACTIONS (3)
  - Lethargy [Unknown]
  - Malaise [Unknown]
  - Fatigue [Unknown]
